FAERS Safety Report 17888200 (Version 1)
Quarter: 2020Q2

REPORT INFORMATION
  Report Type: Spontaneous
  Country: US (occurrence: US)
  Receive Date: 20200611
  Receipt Date: 20200611
  Transmission Date: 20200714
  Serious: Yes (Other)
  Sender: FDA-Public Use
  Company Number: None

PATIENT
  Age: 67 Year
  Sex: Male
  Weight: 88 kg

DRUGS (7)
  1. REMDESIVIR. [Suspect]
     Active Substance: REMDESIVIR
     Indication: COVID-19 PNEUMONIA
     Route: 042
     Dates: start: 20200522, end: 20200601
  2. AZITHROMYCIN ANHYDROUS. [Concomitant]
     Active Substance: AZITHROMYCIN ANHYDROUS
     Dates: start: 20200522, end: 20200526
  3. VASOPRESSIN. [Concomitant]
     Active Substance: VASOPRESSIN
     Dates: start: 20200523, end: 20200602
  4. METRONIDAZOLE. [Concomitant]
     Active Substance: METRONIDAZOLE
     Dates: start: 20200523, end: 20200528
  5. PRECEDEX [Concomitant]
     Active Substance: DEXMEDETOMIDINE HYDROCHLORIDE
     Dates: start: 20200531, end: 20200608
  6. MICAFUNGIN. [Concomitant]
     Active Substance: MICAFUNGIN SODIUM
     Dates: start: 20200530, end: 20200611
  7. MEROPENEM. [Concomitant]
     Active Substance: MEROPENEM
     Dates: start: 20200528, end: 20200604

REACTIONS (4)
  - Alanine aminotransferase increased [None]
  - Pneumonia pseudomonal [None]
  - Aspartate aminotransferase increased [None]
  - Pneumonia [None]

NARRATIVE: CASE EVENT DATE: 20200528
